FAERS Safety Report 14809415 (Version 1)
Quarter: 2018Q2

REPORT INFORMATION
  Report Type: Spontaneous
  Country: US (occurrence: US)
  Receive Date: 20180425
  Receipt Date: 20180425
  Transmission Date: 20180711
  Serious: No
  Sender: FDA-Public Use
  Company Number: US-AMGEN-USASP2018000708

PATIENT
  Age: 65 Year
  Sex: Female
  Weight: 125.17 kg

DRUGS (1)
  1. REPATHA [Suspect]
     Active Substance: EVOLOCUMAB
     Indication: BLOOD CHOLESTEROL INCREASED
     Dosage: 140 MG, Q2WK
     Route: 065
     Dates: start: 201509

REACTIONS (3)
  - Wrong technique in product usage process [Unknown]
  - Injection site discomfort [Unknown]
  - Underdose [Unknown]
